FAERS Safety Report 17957412 (Version 1)
Quarter: 2020Q2

REPORT INFORMATION
  Report Type: Spontaneous
  Country: JP (occurrence: JP)
  Receive Date: 20200629
  Receipt Date: 20200629
  Transmission Date: 20200714
  Serious: Yes (Hospitalization)
  Sender: FDA-Public Use
  Company Number: JP-ELI_LILLY_AND_COMPANY-JP202006011657

PATIENT
  Age: 75 Year
  Sex: Male
  Weight: 40 kg

DRUGS (13)
  1. CLEANAL [Concomitant]
     Active Substance: FUDOSTEINE
     Indication: CHRONIC OBSTRUCTIVE PULMONARY DISEASE
     Dosage: 800 MG
     Dates: start: 20120612
  2. ADCIRCA [Suspect]
     Active Substance: TADALAFIL
     Indication: PULMONARY HYPERTENSION
     Dosage: 40 MG, UNKNOWN
     Route: 065
     Dates: start: 20180605
  3. UPTRAVI [Suspect]
     Active Substance: SELEXIPAG
     Dosage: 0.2 MG, BID
     Route: 048
     Dates: start: 20180605
  4. ROZEREM [Concomitant]
     Active Substance: RAMELTEON
     Indication: INSOMNIA
     Dosage: 8 MG
     Dates: start: 20120525
  5. THEOLONG [Concomitant]
     Active Substance: THEOPHYLLINE ANHYDROUS
     Indication: CHRONIC OBSTRUCTIVE PULMONARY DISEASE
     Dosage: UNK
     Dates: start: 20120605
  6. TULOBUTEROL [Concomitant]
     Active Substance: TULOBUTEROL
     Indication: CHRONIC OBSTRUCTIVE PULMONARY DISEASE
     Dosage: 2 MG
     Dates: start: 20120612
  7. REVATIO [Concomitant]
     Active Substance: SILDENAFIL CITRATE
     Indication: PULMONARY HYPERTENSION
     Dosage: UNK
     Dates: start: 20120610
  8. ADOAIR [Concomitant]
     Active Substance: FLUTICASONE PROPIONATE\SALMETEROL XINAFOATE
     Indication: CHRONIC OBSTRUCTIVE PULMONARY DISEASE
     Dosage: 500 UG
     Dates: start: 20120605
  9. SPIRIVA [Concomitant]
     Active Substance: TIOTROPIUM BROMIDE MONOHYDRATE
     Indication: CHRONIC OBSTRUCTIVE PULMONARY DISEASE
     Dosage: 5 UG
     Dates: start: 20120605
  10. TRACLEER [Concomitant]
     Active Substance: BOSENTAN
     Indication: PULMONARY HYPERTENSION
     Dosage: 187.5 MG
     Dates: start: 20180605
  11. UPTRAVI [Suspect]
     Active Substance: SELEXIPAG
     Indication: PULMONARY HYPERTENSION
     Dosage: 0.2 MG, BID
     Route: 048
     Dates: start: 20170804
  12. OPSUMIT [Concomitant]
     Active Substance: MACITENTAN
     Indication: PULMONARY HYPERTENSION
     Dosage: 10 MG
     Dates: start: 20180605
  13. GOSHAJINKIGAN [Concomitant]
     Active Substance: HERBALS
     Indication: NEUROPATHY PERIPHERAL
     Dosage: 7.5 G
     Dates: start: 20150306

REACTIONS (1)
  - Pulmonary arterial hypertension [Recovered/Resolved]

NARRATIVE: CASE EVENT DATE: 201904
